FAERS Safety Report 16209051 (Version 1)
Quarter: 2019Q2

REPORT INFORMATION
  Report Type: Other
  Country: US (occurrence: US)
  Receive Date: 20190417
  Receipt Date: 20190417
  Transmission Date: 20190711
  Serious: Yes (Death)
  Sender: FDA-Public Use
  Company Number: US-LEADIANT BIOSCIENCES INC-2019STPI000160

PATIENT
  Sex: Female

DRUGS (2)
  1. MULTIVITAMINS                      /00116001/ [Suspect]
     Active Substance: VITAMINS
     Indication: CEREBRAL DISORDER
     Dosage: 150 MG PO QD ON DAYS 2 - 8
     Route: 048
     Dates: start: 20190205
  2. MATULANE [Suspect]
     Active Substance: PROCARBAZINE HYDROCHLORIDE
     Indication: CEREBRAL DISORDER
     Dosage: 150 MG PO QD ON DAYS 2-8
     Dates: start: 20190205, end: 2019

REACTIONS (1)
  - Death [Fatal]

NARRATIVE: CASE EVENT DATE: 2019
